FAERS Safety Report 8149063-0 (Version None)
Quarter: 2012Q1

REPORT INFORMATION
  Report Type: 
  Country: None (occurrence: None)
  Receive Date: 20120218
  Receipt Date: 20110824
  Transmission Date: 20120608
  Serious: No
  Sender: FDA-Public Use
  Company Number: US-ALLERGAN-1111348US

PATIENT
  Sex: Female

DRUGS (6)
  1. BOTOX COSMETIC [Suspect]
     Dosage: 40 UNITS, SINGLE
     Route: 030
     Dates: start: 20110520, end: 20110520
  2. BOTOX COSMETIC [Suspect]
     Dosage: 20 UNITS, SINGLE
     Route: 030
     Dates: start: 20110107, end: 20110107
  3. BOTOX COSMETIC [Suspect]
     Indication: SKIN WRINKLING
     Dosage: 20 UNITS, SINGLE
     Route: 030
     Dates: start: 20101223, end: 20101223
  4. BOTOX COSMETIC [Suspect]
     Dosage: 22 UNITS, SINGLE
     Route: 030
     Dates: start: 20110207, end: 20110207
  5. BOTOX COSMETIC [Suspect]
     Dosage: 44 UNITS, SINGLE
     Route: 030
     Dates: start: 20110616, end: 20110616
  6. BOTOX COSMETIC [Suspect]
     Dosage: 20 UNITS, SINGLE
     Route: 030
     Dates: start: 20101231, end: 20101231

REACTIONS (2)
  - DRUG INEFFECTIVE [None]
  - THERAPEUTIC RESPONSE DECREASED [None]
